FAERS Safety Report 24187209 (Version 1)
Quarter: 2024Q3

REPORT INFORMATION
  Report Type: Spontaneous
  Country: AR (occurrence: AR)
  Receive Date: 20240808
  Receipt Date: 20240808
  Transmission Date: 20241016
  Serious: Yes (Disabling)
  Sender: ROCHE
  Company Number: AR-ROCHE-10000047951

PATIENT
  Age: 51 Year

DRUGS (1)
  1. ENSPRYNG [Suspect]
     Active Substance: SATRALIZUMAB-MWGE
     Indication: Neuromyelitis optica spectrum disorder
     Dosage: DOSE AND FREQUENCY WERE NOT REPORTED
     Route: 065

REACTIONS (4)
  - Myalgia [Unknown]
  - Motor dysfunction [Unknown]
  - Pain [Unknown]
  - Movement disorder [Unknown]
